FAERS Safety Report 13550004 (Version 8)
Quarter: 2017Q4

REPORT INFORMATION
  Report Type: Spontaneous
  Country: FR (occurrence: FR)
  Receive Date: 20170516
  Receipt Date: 20171122
  Transmission Date: 20180320
  Serious: Yes (Life-Threatening, Hospitalization, Disabling, Other)
  Sender: FDA-Public Use
  Company Number: FR-GLAXOSMITHKLINE-FR2017GSK070214

PATIENT
  Age: 65 Year
  Sex: Male
  Weight: 120 kg

DRUGS (7)
  1. KETOCONAZOLE. [Concomitant]
     Active Substance: KETOCONAZOLE
     Dosage: UNK
     Route: 048
     Dates: start: 201607, end: 20170508
  2. CLAMOXYL [Concomitant]
     Active Substance: AMOXICILLIN\CLAVULANIC ACID
     Indication: BRONCHITIS
     Dosage: 1 UNK, TID
     Route: 048
     Dates: start: 20170130, end: 201702
  3. ANORO ELLIPTA [Suspect]
     Active Substance: UMECLIDINIUM BROMIDE\VILANTEROL TRIFENATATE
     Indication: BRONCHITIS
     Dosage: 1 PUFF(S), 1D
     Route: 055
     Dates: start: 20170504, end: 20170508
  4. SERETIDE [Suspect]
     Active Substance: FLUTICASONE PROPIONATE\SALMETEROL XINAFOATE
     Indication: BRONCHITIS
     Dosage: 1 PUFF(S), BID
     Route: 055
     Dates: start: 20170130, end: 20170717
  5. TEMESTA [Concomitant]
     Active Substance: LORAZEPAM
     Indication: PRODUCT USED FOR UNKNOWN INDICATION
     Dosage: 2 UNK, 1D
     Route: 048
  6. VENTOLINE DISKUS [Suspect]
     Active Substance: ALBUTEROL SULFATE
     Indication: PRODUCT USED FOR UNKNOWN INDICATION
     Dosage: 2 PUFF(S), BID
     Route: 055
     Dates: start: 20170510
  7. FLIXONASE [Concomitant]
     Active Substance: FLUTICASONE PROPIONATE

REACTIONS (46)
  - Chest discomfort [Recovered/Resolved]
  - Sinusitis [Not Recovered/Not Resolved]
  - Myalgia [Not Recovered/Not Resolved]
  - Arthralgia [Not Recovered/Not Resolved]
  - Weight increased [Not Recovered/Not Resolved]
  - Respiratory disorder [Unknown]
  - Pain [Unknown]
  - Product use in unapproved indication [Unknown]
  - Eye disorder [Unknown]
  - Muscular weakness [Not Recovered/Not Resolved]
  - Gingival disorder [Unknown]
  - Overdose [Unknown]
  - Nasal congestion [Not Recovered/Not Resolved]
  - Condition aggravated [Unknown]
  - Loss of control of legs [Unknown]
  - Dyspnoea [Recovered/Resolved]
  - Malaise [Recovered/Resolved]
  - Cough [Recovered/Resolved]
  - Drug prescribing error [Unknown]
  - Inappropriate prescribing [Unknown]
  - Sternal fracture [Unknown]
  - Discomfort [Unknown]
  - Loss of personal independence in daily activities [Unknown]
  - Intervertebral disc disorder [Unknown]
  - Visual impairment [Not Recovered/Not Resolved]
  - Ligament pain [Not Recovered/Not Resolved]
  - Drug ineffective [Unknown]
  - Asthenia [Not Recovered/Not Resolved]
  - Arthritis [Unknown]
  - Oral infection [Recovered/Resolved]
  - Obesity [Unknown]
  - Sternal injury [Unknown]
  - Chest pain [Unknown]
  - Oropharyngeal pain [Unknown]
  - Cartilage injury [Unknown]
  - Road traffic accident [Unknown]
  - Oropharyngeal discomfort [Recovered/Resolved]
  - Anxiety [Unknown]
  - Neck pain [Unknown]
  - Musculoskeletal chest pain [Unknown]
  - Fatigue [Unknown]
  - Spinal osteoarthritis [Not Recovered/Not Resolved]
  - Suffocation feeling [Recovered/Resolved]
  - Cataract [Unknown]
  - Eye movement disorder [Unknown]
  - Osteoarthritis [Unknown]

NARRATIVE: CASE EVENT DATE: 2017
